FAERS Safety Report 5106930-X (Version None)
Quarter: 2006Q3

REPORT INFORMATION
  Report Type: 
  Country: None (occurrence: None)
  Receive Date: 20060918
  Receipt Date: 20060907
  Transmission Date: 20061208
  Serious: Yes (Other)
  Sender: FDA-Public Use
  Company Number: FR-BOEHRINGER INGELHEIM PHARMACEUTICALS, INC.-2006-DE-04795GD

PATIENT
  Age: 52 Year
  Sex: Female

DRUGS (2)
  1. PREDNISONE [Suspect]
     Indication: PEMPHIGUS
     Dates: end: 20040801
  2. MYCOPHENOLATE MOFETIL [Suspect]
     Indication: PEMPHIGUS
     Dates: end: 20040801

REACTIONS (3)
  - DRUG INEFFECTIVE [None]
  - INSOMNIA [None]
  - WEIGHT INCREASED [None]
